FAERS Safety Report 20589792 (Version 1)
Quarter: 2022Q1

REPORT INFORMATION
  Report Type: Spontaneous
  Country: US (occurrence: US)
  Receive Date: 20220314
  Receipt Date: 20220314
  Transmission Date: 20220424
  Serious: No
  Sender: FDA-Public Use
  Company Number: US-GW PHARMA-202203USGW01202

PATIENT
  Sex: Female
  Weight: 123.81 kg

DRUGS (5)
  1. EPIDIOLEX [Suspect]
     Active Substance: CANNABIDIOL
     Indication: Seizure
     Dosage: 1.62 MG/KG/DAY, 100 MILLIGRAM, BID
     Route: 048
     Dates: start: 20220208, end: 20220215
  2. EPIDIOLEX [Suspect]
     Active Substance: CANNABIDIOL
     Dosage: 3.23 MG/KG/DAY, 200 MILLIGRAM, BID
     Route: 048
     Dates: start: 20220216, end: 20220223
  3. EPIDIOLEX [Suspect]
     Active Substance: CANNABIDIOL
     Dosage: 4.85 MG/KG/DAY, 300 MILLIGRAM, BID
     Route: 048
     Dates: start: 20220224, end: 20220303
  4. EPIDIOLEX [Suspect]
     Active Substance: CANNABIDIOL
     Dosage: 6.46 MG/KG/DAY, 400 MILLIGRAM, BID, AND 500 MILLIGRAM, BID THEREAFTER
     Route: 048
     Dates: start: 20220304
  5. ONFI [Concomitant]
     Active Substance: CLOBAZAM
     Indication: Product used for unknown indication
     Dosage: UNK
     Route: 065

REACTIONS (1)
  - Nausea [Unknown]

NARRATIVE: CASE EVENT DATE: 20220101
